FAERS Safety Report 5340904-9 (Version None)
Quarter: 2007Q2

REPORT INFORMATION
  Report Type: 
  Country: None (occurrence: None)
  Receive Date: 20070531
  Receipt Date: 20070502
  Transmission Date: 20071010
  Serious: Yes (Other)
  Sender: FDA-Public Use
  Company Number: US-MERCK-0705USA00593

PATIENT

DRUGS (10)
  1. SINGULAIR [Suspect]
     Indication: ASTHMA
     Route: 064
  2. MICARDIS [Concomitant]
     Indication: ASTHMA
     Route: 064
  3. HYDROCHLOROTHIAZIDE [Concomitant]
     Route: 064
  4. TRICOR [Concomitant]
     Route: 064
  5. ZOLOFT [Concomitant]
     Route: 064
  6. LEVOTHYROXINE SODIUM [Concomitant]
     Route: 064
  7. ALBUTEROL [Concomitant]
     Route: 064
  8. METOPROLOL [Concomitant]
     Route: 064
  9. VITAMINS (UNSPECIFIED) [Concomitant]
     Route: 064
  10. IRON (UNSPECIFIED) [Concomitant]
     Route: 064

REACTIONS (1)
  - FOETAL DISTRESS SYNDROME [None]
